FAERS Safety Report 7492623-0 (Version None)
Quarter: 2011Q2

REPORT INFORMATION
  Report Type: 
  Country: None (occurrence: None)
  Receive Date: 20110519
  Receipt Date: 20110512
  Transmission Date: 20111010
  Serious: Yes (Life-Threatening, Hospitalization, Other)
  Sender: FDA-Public Use
  Company Number: FR-ELI_LILLY_AND_COMPANY-FR201105003311

PATIENT
  Sex: Male

DRUGS (2)
  1. NAVELBINE [Concomitant]
     Indication: HODGKIN'S DISEASE
     Dosage: 40 MG, UNKNOWN
     Route: 042
     Dates: start: 20100826, end: 20110210
  2. GEMZAR [Suspect]
     Indication: HODGKIN'S DISEASE
     Dosage: 1600 MG, UNKNOWN
     Route: 042
     Dates: start: 20100826, end: 20110210

REACTIONS (6)
  - PANCYTOPENIA [None]
  - RESPIRATORY DISTRESS [None]
  - PLEURAL EFFUSION [None]
  - INFECTION [None]
  - OFF LABEL USE [None]
  - CARDIAC FAILURE [None]
